FAERS Safety Report 24857472 (Version 1)
Quarter: 2025Q1

REPORT INFORMATION
  Report Type: Spontaneous
  Country: US (occurrence: US)
  Receive Date: 20250117
  Receipt Date: 20250117
  Transmission Date: 20250409
  Serious: Yes (Other)
  Sender: TEVA
  Company Number: US-TEVA-VS-3287461

PATIENT
  Age: 32 Year
  Sex: Female

DRUGS (1)
  1. OCTREOTIDE [Suspect]
     Active Substance: OCTREOTIDE
     Indication: Product used for unknown indication
     Route: 065
     Dates: start: 202410

REACTIONS (4)
  - Intestinal obstruction [Unknown]
  - Nausea [Unknown]
  - Drug effect less than expected [Unknown]
  - Feeling abnormal [Unknown]
